FAERS Safety Report 7076616-3 (Version None)
Quarter: 2010Q4

REPORT INFORMATION
  Report Type: 
  Country: None (occurrence: None)
  Receive Date: 20101022
  Receipt Date: 20101007
  Transmission Date: 20110411
  Serious: Yes (Hospitalization)
  Sender: FDA-Public Use
  Company Number: 2010MA003430

PATIENT
  Age: 55 Year
  Sex: Male

DRUGS (7)
  1. FLUOXETINE [Suspect]
     Dosage: 20 MG; QD; PO
     Route: 048
  2. DESIPRAMINE HCL [Concomitant]
  3. PHENAZOPYRIDINE HCL TAB [Concomitant]
  4. OXYCODONE HCL [Concomitant]
  5. LEVOFLOXACIN [Concomitant]
  6. METRONIDAZOLE [Concomitant]
  7. NORMAL SALINE [Concomitant]

REACTIONS (19)
  - ABDOMINAL PAIN [None]
  - BLOOD TESTOSTERONE DECREASED [None]
  - COLITIS [None]
  - CONFUSIONAL STATE [None]
  - DECREASED APPETITE [None]
  - DEPRESSION [None]
  - DIZZINESS [None]
  - FATIGUE [None]
  - HEADACHE [None]
  - HYPONATRAEMIA [None]
  - INAPPROPRIATE ANTIDIURETIC HORMONE SECRETION [None]
  - LIBIDO DECREASED [None]
  - MYALGIA [None]
  - PITUITARY ENLARGEMENT [None]
  - SECONDARY ADRENOCORTICAL INSUFFICIENCY [None]
  - SUICIDAL IDEATION [None]
  - THYROXINE FREE DECREASED [None]
  - URINARY TRACT INFECTION [None]
  - WEIGHT DECREASED [None]
